FAERS Safety Report 5937383-7 (Version None)
Quarter: 2008Q4

REPORT INFORMATION
  Report Type: 
  Country: None (occurrence: None)
  Receive Date: 20081031
  Receipt Date: 20081024
  Transmission Date: 20090506
  Serious: Yes (Other)
  Sender: FDA-Public Use
  Company Number: US-TEVA-178421USA

PATIENT
  Sex: Female

DRUGS (4)
  1. SALBUTAMOL SULFATE INHALATION, 0.09 MG [Suspect]
     Route: 055
     Dates: start: 20080901
  2. PREDNISONE [Concomitant]
  3. ACETYLSALICYLIC ACID SRT [Concomitant]
  4. IBUPROFEN TABLETS [Concomitant]

REACTIONS (1)
  - HAEMOPTYSIS [None]
